FAERS Safety Report 5509407-2 (Version None)
Quarter: 2007Q4

REPORT INFORMATION
  Report Type: 
  Country: None (occurrence: None)
  Receive Date: 20071107
  Receipt Date: 20071102
  Transmission Date: 20080405
  Serious: Yes (Other)
  Sender: FDA-Public Use
  Company Number: US-ALLERGAN-0711906US

PATIENT
  Sex: Female

DRUGS (1)
  1. BOTOX [Suspect]
     Indication: MIGRAINE
     Dosage: 16 UNITS, SINGLE
     Route: 030
     Dates: start: 20070904, end: 20070904

REACTIONS (5)
  - DRY EYE [None]
  - HEADACHE [None]
  - MACULOPATHY [None]
  - VISION BLURRED [None]
  - VISUAL DISTURBANCE [None]
